FAERS Safety Report 26194155 (Version 1)
Quarter: 2025Q4

REPORT INFORMATION
  Report Type: Report from Study
  Country: EU (occurrence: EU)
  Receive Date: 20251224
  Receipt Date: 20251224
  Transmission Date: 20260117
  Serious: Yes (Other)
  Sender: GENMAB
  Company Number: None

PATIENT
  Age: 71 Year
  Sex: Male
  Weight: 101 kg

DRUGS (33)
  1. EPCORITAMAB [Suspect]
     Active Substance: EPCORITAMAB
     Indication: Diffuse large B-cell lymphoma
     Dosage: C1D1
     Route: 058
     Dates: start: 20240221, end: 20240221
  2. EPCORITAMAB [Suspect]
     Active Substance: EPCORITAMAB
     Dosage: C1D2
     Route: 058
     Dates: start: 20240228, end: 20240228
  3. EPCORITAMAB [Suspect]
     Active Substance: EPCORITAMAB
     Dosage: C1D15 ET D22
     Route: 058
     Dates: start: 20240306, end: 20240313
  4. EPCORITAMAB [Suspect]
     Active Substance: EPCORITAMAB
     Dosage: C2D1 ET D8
     Route: 058
     Dates: start: 20240321, end: 20240328
  5. EPCORITAMAB [Suspect]
     Active Substance: EPCORITAMAB
     Dosage: C2D22
     Route: 058
     Dates: start: 20240410, end: 20240410
  6. EPCORITAMAB [Suspect]
     Active Substance: EPCORITAMAB
     Dosage: C3 D1 D8 D15
     Route: 058
     Dates: start: 20240612, end: 20240626
  7. EPCORITAMAB [Suspect]
     Active Substance: EPCORITAMAB
     Dosage: C4 DAY1 TO? C8 DAY15
     Route: 058
     Dates: start: 20240710, end: 20241127
  8. EPCORITAMAB [Suspect]
     Active Substance: EPCORITAMAB
     Dosage: CYCLES 9 ; 10 ET 11
     Route: 058
     Dates: start: 20250103, end: 20250303
  9. CETIRIZINE HYDROCHLORIDE [Concomitant]
     Active Substance: CETIRIZINE HYDROCHLORIDE
     Indication: Premedication
     Dosage: UNK, BEFORE EACH TREATMENT
     Route: 048
     Dates: start: 20240221, end: 20250315
  10. PHENOBARBITAL [Concomitant]
     Active Substance: PHENOBARBITAL
     Indication: Epilepsy
     Dosage: 250 MG/J
     Route: 048
  11. OMEPRAZOLE [Concomitant]
     Active Substance: OMEPRAZOLE
     Indication: Product used for unknown indication
     Dosage: 40 MG/J
     Route: 048
     Dates: start: 20240216, end: 20240316
  12. VALACYCLOVIR HYDROCHLORIDE [Concomitant]
     Active Substance: VALACYCLOVIR HYDROCHLORIDE
     Indication: Infection prophylaxis
     Dosage: 1000 MG/J
     Route: 048
  13. PROPRANOLOL HYDROCHLORIDE [Concomitant]
     Active Substance: PROPRANOLOL HYDROCHLORIDE
     Indication: Product used for unknown indication
     Dosage: DOSE FORM: PROLONGED RELEASE , ARROW 40 MG, SCORED FILM-COATED TABLET
     Route: 048
  14. FUROSEMIDE [Concomitant]
     Active Substance: FUROSEMIDE
     Indication: Product used for unknown indication
     Dosage: 60 MG/J
     Route: 048
  15. NORMACOL [SODIUM PHOSPHATE DIBASIC;SODIUM PHOSPHATE DIBASIC DODECAHYDR [Concomitant]
     Indication: Constipation
     Dosage: NORMACOL ENEMA FOR ADULTS, RECTAL SOLUTION, SINGLE-DOSE CONTAINER, 1 ENEMA IN THE MORNING IF NO BOWE
     Route: 054
     Dates: end: 20240220
  16. PREDNISONE [Concomitant]
     Active Substance: PREDNISONE
     Indication: Prophylaxis
     Dosage: 100 MG/DAY FOR THE 3 DAYS FOLLOWING EACH EPCORITAMAB INJECTION
     Route: 048
     Dates: start: 20240222, end: 20250315
  17. POLYETHYLENE GLYCOL 4000 [Concomitant]
     Active Substance: POLYETHYLENE GLYCOL 4000
     Indication: Product used for unknown indication
     Dosage: 2 SACHETS PER DAY
     Route: 048
     Dates: end: 20240220
  18. FOLIC ACID [Concomitant]
     Active Substance: FOLIC ACID
     Indication: Folate deficiency
     Dosage: 10 MG/J, CCD 5 MG
     Route: 048
  19. CHOLECALCIFEROL [Concomitant]
     Active Substance: CHOLECALCIFEROL
     Indication: Vitamin D deficiency
     Dosage: ORAL SOLUTION IN AMPOULE
     Route: 048
  20. PHLOROGLUCINOL [Concomitant]
     Active Substance: PHLOROGLUCINOL
     Indication: Abdominal pain
     Dosage: 240 MG/J
     Route: 048
     Dates: start: 20240220
  21. PHLOROGLUCINOL [Concomitant]
     Active Substance: PHLOROGLUCINOL
     Dosage: 480 MG/J
     Route: 048
     Dates: end: 20240220
  22. ACETAMINOPHEN [Concomitant]
     Active Substance: ACETAMINOPHEN
     Indication: Pain
     Dosage: 3 G/J
     Route: 048
     Dates: start: 20240220
  23. BACTRIM [Concomitant]
     Active Substance: SULFAMETHOXAZOLE\TRIMETHOPRIM
     Indication: Antifungal prophylaxis
     Dosage: 1 COMPRIM? 3 FOIS PAR SEMAINE
     Route: 048
     Dates: start: 20240220, end: 20250315
  24. PREDNISOLONE ACETATE [Concomitant]
     Active Substance: PREDNISOLONE ACETATE
     Indication: Product used for unknown indication
     Dosage: 20 MG/J
     Route: 048
     Dates: end: 20240221
  25. TAMSULOSIN HYDROCHLORIDE [Concomitant]
     Active Substance: TAMSULOSIN HYDROCHLORIDE
     Indication: Benign prostatic hyperplasia
     Dosage: ALMUS P.R. 0.4 MG PROLONGED-RELEASE IN THE EVENING
     Route: 048
  26. AMIODARONE [Concomitant]
     Active Substance: AMIODARONE
     Indication: Tachycardia
     Dosage: 200 MG/J
     Route: 048
  27. METHYLPREDNISOLONE [Concomitant]
     Active Substance: METHYLPREDNISOLONE
     Indication: Product used for unknown indication
     Dosage: 100 MG/J
     Route: 048
     Dates: start: 20240216, end: 20240221
  28. PANTOPRAZOLE [PANTOPRAZOLE SODIUM] [Concomitant]
     Indication: Prophylaxis
     Dosage: 20 MG LE SOIR EN PARALL?LE DES CORTICO?DES
     Route: 048
     Dates: start: 20240221, end: 20250315
  29. MAGNESIUM ASPARTATE [Concomitant]
     Active Substance: MAGNESIUM ASPARTATE
     Indication: Thrombosis
     Dosage: 10 MG/J
     Route: 048
     Dates: end: 20240219
  30. DEXAMETHASONE ACETATE [Concomitant]
     Active Substance: DEXAMETHASONE ACETATE
     Indication: Premedication
     Dosage: 20 MILLIGRAM, QD
     Route: 048
     Dates: start: 20240221, end: 20250315
  31. NALOXEGOL OXALATE [Concomitant]
     Active Substance: NALOXEGOL OXALATE
     Indication: Constipation
     Dosage: 12,5 MG/J, 12,5 MG, COMPRIM? PELLICUL?
     Route: 048
     Dates: start: 20240220
  32. OXYCONTIN [Concomitant]
     Active Substance: OXYCODONE HYDROCHLORIDE
     Indication: Pain
     Dosage: 5 MG IF NEEDED, P.R. 5 MG, PROLONGED-RELEASE FILM-COATED TABLET
     Route: 048
  33. OXYCONTIN [Concomitant]
     Active Substance: OXYCODONE HYDROCHLORIDE
     Dosage: PR 10 MG, PROLONGED-RELEASE FILM-COATED TABLET
     Route: 048

REACTIONS (2)
  - Bacterial infection [Recovered/Resolved]
  - Cytokine release syndrome [Recovered/Resolved]

NARRATIVE: CASE EVENT DATE: 20240315
